FAERS Safety Report 21044748 (Version 1)
Quarter: 2022Q3

REPORT INFORMATION
  Report Type: Spontaneous
  Country: CN (occurrence: CN)
  Receive Date: 20220705
  Receipt Date: 20220705
  Transmission Date: 20221027
  Serious: Yes (Other)
  Sender: FDA-Public Use
  Company Number: CN-PFIZER INC-202200916949

PATIENT
  Age: 49 Year
  Sex: Female

DRUGS (4)
  1. CYTARABINE [Suspect]
     Active Substance: CYTARABINE
     Indication: Chemotherapy
     Dosage: 0.163 G, 1X/DAY
     Dates: start: 20220518, end: 20220522
  2. DEXTROSE [Suspect]
     Active Substance: DEXTROSE
     Dosage: 250 ML, 1X/DAY
     Dates: start: 20220518, end: 20220522
  3. AZACITIDINE [Suspect]
     Active Substance: AZACITIDINE
     Indication: Chemotherapy
     Dosage: 100 MG, 1X/DAY
     Route: 058
     Dates: start: 20220518, end: 20220524
  4. STERILE WATER [Suspect]
     Active Substance: WATER
     Dosage: 4 ML, 1X/DAY
     Route: 058
     Dates: start: 20220518, end: 20220524

REACTIONS (2)
  - Infection [Unknown]
  - Liver function test abnormal [Unknown]

NARRATIVE: CASE EVENT DATE: 20220501
